FAERS Safety Report 7208994-6 (Version None)
Quarter: 2011Q1

REPORT INFORMATION
  Report Type: 
  Country: None (occurrence: None)
  Receive Date: 20110104
  Receipt Date: 20101221
  Transmission Date: 20110831
  Serious: Yes (Other)
  Sender: FDA-Public Use
  Company Number: PHHY2010TR86869

PATIENT
  Age: 16 Year
  Sex: Male

DRUGS (3)
  1. AMPICILLIN [Suspect]
     Indication: COLOSTOMY
     Dosage: UNK
  2. CLINDAMYCIN [Suspect]
     Indication: COLOSTOMY
     Dosage: UNK
  3. AMIKACIN [Suspect]
     Indication: COLOSTOMY
     Dosage: UNK

REACTIONS (4)
  - RASH ERYTHEMATOUS [None]
  - RASH PUSTULAR [None]
  - PYREXIA [None]
  - ACUTE GENERALISED EXANTHEMATOUS PUSTULOSIS [None]
